FAERS Safety Report 8564008 (Version 2)
Quarter: 2012Q4

REPORT INFORMATION
  Report Type: 
  Country: VE (occurrence: VE)
  Receive Date: 20120516
  Receipt Date: 20121030
  Transmission Date: 20130627
  Serious: Yes (Death, Other)
  Sender: FDA-Public Use
  Company Number: VE-ELI_LILLY_AND_COMPANY-VE201205004538

PATIENT
  Age: 81 Year
  Sex: Male

DRUGS (1)
  1. HUMALOG 25% LISPRO, 75% NPL [Suspect]
     Indication: TYPE 2 DIABETES MELLITUS
     Dosage: 10 u, each evening
     Dates: start: 20120320

REACTIONS (3)
  - Death [Fatal]
  - Dyspnoea [Unknown]
  - Prostate cancer [Unknown]
